FAERS Safety Report 5410272-2 (Version None)
Quarter: 2007Q3

REPORT INFORMATION
  Report Type: 
  Country: None (occurrence: None)
  Receive Date: 20070808
  Receipt Date: 20070726
  Transmission Date: 20080115
  Serious: No
  Sender: FDA-Public Use
  Company Number: 2007S1006833

PATIENT
  Age: 76 Year
  Sex: Female

DRUGS (11)
  1. FENTANYL TRANSDERMAL SYSTEM [Suspect]
     Indication: CANCER PAIN
     Dosage: 75 UG/HR; EVERY 3 DAYS; TRANSDERMAL
     Route: 062
     Dates: start: 20060201
  2. FENTANYL TRANSDERMAL SYSTEM [Suspect]
     Indication: PAIN
     Dosage: 75 UG/HR; EVERY 3 DAYS; TRANSDERMAL
     Route: 062
     Dates: start: 20060201
  3. COUMADIN [Concomitant]
  4. GLUCOTROL [Concomitant]
  5. LORAZEPAM [Concomitant]
  6. LYRICA [Concomitant]
  7. LEBOTHYROXINE [Concomitant]
  8. LEXAPRO [Concomitant]
  9. ARICEPT [Concomitant]
  10. PERCOCET [Concomitant]
  11. PRILOSEC [Concomitant]

REACTIONS (6)
  - ARTHRALGIA [None]
  - MUSCULOSKELETAL PAIN [None]
  - PAIN [None]
  - PHARMACEUTICAL PRODUCT COMPLAINT [None]
  - TEARFULNESS [None]
  - URINARY TRACT INFECTION [None]
